FAERS Safety Report 24974405 (Version 1)
Quarter: 2025Q1

REPORT INFORMATION
  Report Type: Spontaneous
  Country: US (occurrence: US)
  Receive Date: 20250217
  Receipt Date: 20250217
  Transmission Date: 20250409
  Serious: No
  Sender: ROCHE
  Company Number: US-ROCHE-10000205398

PATIENT
  Age: 46 Year
  Sex: Female

DRUGS (3)
  1. ALECENSA [Suspect]
     Active Substance: ALECTINIB HYDROCHLORIDE
     Indication: Non-small cell lung cancer
     Dosage: 1200 MG (INITIALLY) 900MG TOTAL (CURRENTLY); TWICE DAILY (450MG?EACH DOSE)
     Route: 048
     Dates: start: 202306
  2. VICKS NYQUIL [Concomitant]
     Active Substance: ACETAMINOPHEN\DEXTROMETHORPHAN HYDROBROMIDE\DOXYLAMINE SUCCINATE
     Indication: Bronchitis
     Route: 048
  3. VICKS DAYQUIL [Concomitant]
     Active Substance: DEXTROMETHORPHAN HYDROBROMIDE\GUAIFENESIN
     Indication: Bronchitis
     Route: 048

REACTIONS (6)
  - Bronchitis [Recovered/Resolved]
  - Liver function test increased [Recovered/Resolved]
  - Weight increased [Recovering/Resolving]
  - Constipation [Recovered/Resolved]
  - Hypotension [Recovered/Resolved]
  - Photosensitivity reaction [Recovered/Resolved]

NARRATIVE: CASE EVENT DATE: 20230801
